FAERS Safety Report 6812980-5 (Version None)
Quarter: 2010Q3

REPORT INFORMATION
  Report Type: 
  Country: None (occurrence: None)
  Receive Date: 20100701
  Receipt Date: 20100624
  Transmission Date: 20110219
  Serious: Yes (Other)
  Sender: FDA-Public Use
  Company Number: US-PFIZER INC-2010079894

PATIENT
  Sex: Female
  Weight: 49.887 kg

DRUGS (4)
  1. LIPITOR [Suspect]
     Indication: BLOOD CHOLESTEROL INCREASED
     Dosage: 10 MG, UNK
     Route: 048
     Dates: start: 19990101
  2. LIPITOR [Suspect]
     Dosage: 40 MG, UNK
     Dates: start: 20070101
  3. ATENOLOL [Concomitant]
     Indication: HYPERTENSION
     Dosage: 25 MG, UNK
     Dates: start: 20070101
  4. CLOPIDOGREL [Concomitant]
     Indication: TRANSIENT ISCHAEMIC ATTACK
     Dosage: UNK
     Dates: start: 20070101

REACTIONS (4)
  - HYPERSENSITIVITY [None]
  - KNEE OPERATION [None]
  - SINUSITIS [None]
  - TRANSIENT ISCHAEMIC ATTACK [None]
